FAERS Safety Report 17875801 (Version 1)
Quarter: 2020Q2

REPORT INFORMATION
  Report Type: Spontaneous
  Country: US (occurrence: US)
  Receive Date: 20200609
  Receipt Date: 20200609
  Transmission Date: 20200714
  Serious: Yes (Death)
  Sender: FDA-Public Use
  Company Number: None

PATIENT
  Age: 52 Year
  Sex: Male
  Weight: 82 kg

DRUGS (13)
  1. METOPROLOL. [Concomitant]
     Active Substance: METOPROLOL
     Dates: start: 20200530, end: 20200531
  2. REMDESIVIR EUA [Suspect]
     Active Substance: REMDESIVIR
     Indication: COVID-19
     Dates: start: 20200530, end: 20200603
  3. VANCOMYCIN [Concomitant]
     Active Substance: VANCOMYCIN
     Dates: start: 20200530, end: 20200604
  4. ACETAMINOPHEN. [Concomitant]
     Active Substance: ACETAMINOPHEN
     Dates: start: 20200530, end: 20200604
  5. NOREPINEPHRINE. [Concomitant]
     Active Substance: NOREPINEPHRINE
     Dates: start: 20200530, end: 20200604
  6. MIDAZOLAM. [Concomitant]
     Active Substance: MIDAZOLAM
     Dates: start: 20200530, end: 20200604
  7. HEPARIN [Concomitant]
     Active Substance: HEPARIN SODIUM
     Dates: start: 20200530, end: 20200604
  8. CISATRICURIUM [Concomitant]
     Dates: start: 20200530, end: 20200604
  9. CEFEPIME [Concomitant]
     Active Substance: CEFEPIME HYDROCHLORIDE
     Dates: start: 20200530, end: 20200604
  10. ROCURONIUM [Concomitant]
     Active Substance: ROCURONIUM BROMIDE
     Dates: end: 20200604
  11. KALETRA [Concomitant]
     Active Substance: LOPINAVIR\RITONAVIR
     Dates: start: 20200530, end: 20200604
  12. TOCILIZUMAB. [Concomitant]
     Active Substance: TOCILIZUMAB
     Dates: start: 20200601, end: 20200601
  13. PENTOXIFYLLINE. [Concomitant]
     Active Substance: PENTOXIFYLLINE
     Dates: start: 20200601, end: 20200603

REACTIONS (8)
  - Acidosis [None]
  - Hypoxia [None]
  - Lung infiltration [None]
  - Procalcitonin increased [None]
  - Paralysis [None]
  - Renal failure [None]
  - Hypotension [None]
  - Cardiac arrest [None]

NARRATIVE: CASE EVENT DATE: 20200604
